FAERS Safety Report 8903383 (Version 1)
Quarter: 2012Q4

REPORT INFORMATION
  Report Type: 
  Country: MX (occurrence: MX)
  Receive Date: 20121113
  Receipt Date: 20121113
  Transmission Date: 20130627
  Serious: Yes (Death)
  Sender: FDA-Public Use
  Company Number: PHHY2012MX104441

PATIENT
  Age: 38 None
  Sex: Female

DRUGS (3)
  1. DIOVAN [Suspect]
     Indication: HYPERTENSION
     Dosage: 160 mg, Daily
  2. PREXIGE [Concomitant]
     Indication: BONE PAIN
     Dosage: 2 DF, daily
     Dates: start: 201205
  3. RIVOTRIL [Concomitant]
     Indication: SLEEP DISORDER
     Dosage: 0.5 DF, daily
     Dates: start: 2002

REACTIONS (2)
  - Cardiac arrest [Fatal]
  - Kidney infection [Fatal]
